FAERS Safety Report 24616370 (Version 2)
Quarter: 2025Q1

REPORT INFORMATION
  Report Type: Spontaneous
  Country: JP (occurrence: JP)
  Receive Date: 20241114
  Receipt Date: 20250127
  Transmission Date: 20250408
  Serious: Yes (Death, Hospitalization)
  Sender: AMGEN
  Company Number: JP-DSJP-DS-2024-102406-

PATIENT
  Age: 54 Year
  Sex: Female

DRUGS (6)
  1. DENOSUMAB [Suspect]
     Active Substance: DENOSUMAB
     Indication: Metastases to bone
     Dosage: 120 MG, ONCE EVERY 1 MO
     Route: 058
     Dates: start: 20220510, end: 20231114
  2. ZOLEDRONIC ACID [Suspect]
     Active Substance: ZOLEDRONIC ACID
     Indication: Metastases to bone
     Dosage: 4 MG, ONCE EVERY 1 MO
     Route: 065
     Dates: start: 20170815, end: 20220405
  3. TAMOXIFEN [Concomitant]
     Active Substance: TAMOXIFEN
     Indication: HER2 negative breast cancer
     Route: 065
  4. GOSERELIN [Concomitant]
     Active Substance: GOSERELIN
     Indication: HER2 negative breast cancer
     Route: 065
  5. FASLODEX [Concomitant]
     Active Substance: FULVESTRANT
     Indication: HER2 negative breast cancer
     Dosage: 500 MG, ONCE EVERY 4 WK
     Route: 030
     Dates: start: 20180612, end: 20201005
  6. FASLODEX [Concomitant]
     Active Substance: FULVESTRANT
     Dosage: 500 MG, ONCE EVERY 4 WK
     Route: 030
     Dates: start: 20201006, end: 20240203

REACTIONS (2)
  - Disease progression [Fatal]
  - Atypical femur fracture [Recovered/Resolved]
